FAERS Safety Report 6040890-2 (Version None)
Quarter: 2009Q1

REPORT INFORMATION
  Report Type: 
  Country: None (occurrence: None)
  Receive Date: 20090116
  Receipt Date: 20080620
  Transmission Date: 20090719
  Serious: No
  Sender: FDA-Public Use
  Company Number: US-BRISTOL-MYERS SQUIBB COMPANY-14236343

PATIENT
  Age: 37 Year
  Sex: Female
  Weight: 79 kg

DRUGS (6)
  1. ABILIFY [Suspect]
     Indication: BIPOLAR I DISORDER
     Dosage: STARTED WITH 1/2 TAB QHS, INCREASED TO 10 MG QD FROM 18JUN08
     Dates: start: 20080610
  2. ALBUTEROL [Concomitant]
     Route: 055
  3. ADDERALL 10 [Concomitant]
     Dates: start: 20080610, end: 20080610
  4. ADVAIR DISKUS 100/50 [Concomitant]
  5. MULTI-VITAMIN [Concomitant]
  6. LOVAZA [Concomitant]

REACTIONS (5)
  - DISTURBANCE IN ATTENTION [None]
  - HYPERHIDROSIS [None]
  - INSOMNIA [None]
  - NAUSEA [None]
  - RESTLESSNESS [None]
